FAERS Safety Report 13707320 (Version 2)
Quarter: 2017Q3

REPORT INFORMATION
  Report Type: Spontaneous
  Country: US (occurrence: US)
  Receive Date: 20170630
  Receipt Date: 20170802
  Transmission Date: 20171127
  Serious: Yes (Hospitalization, Other)
  Sender: FDA-Public Use
  Company Number: US-LUNDBECK-DKLU2033324

PATIENT
  Age: 46 Year
  Sex: Male

DRUGS (2)
  1. NORTHERA [Suspect]
     Active Substance: DROXIDOPA
     Indication: AUTONOMIC NEUROPATHY
     Route: 048
     Dates: start: 20160714
  2. NORTHERA [Suspect]
     Active Substance: DROXIDOPA
     Route: 048

REACTIONS (7)
  - Photophobia [Unknown]
  - Muscle spasms [Recovered/Resolved]
  - Loss of consciousness [Unknown]
  - Dizziness [Unknown]
  - Dyskinesia [Unknown]
  - Hip arthroplasty [Unknown]
  - Vision blurred [Unknown]

NARRATIVE: CASE EVENT DATE: 201706
